FAERS Safety Report 13358197 (Version 10)
Quarter: 2021Q1

REPORT INFORMATION
  Report Type: Spontaneous
  Country: AU (occurrence: AU)
  Receive Date: 20170322
  Receipt Date: 20210111
  Transmission Date: 20210419
  Serious: Yes (Other)
  Sender: FDA-Public Use
  Company Number: AU-ROCHE-1908670

PATIENT
  Sex: Male

DRUGS (1)
  1. LUCENTIS [Suspect]
     Active Substance: RANIBIZUMAB
     Indication: MACULAR DEGENERATION
     Dosage: INJECTION SOLUTION IN SYRINGE 1.65 MG
     Route: 065
     Dates: start: 201608

REACTIONS (29)
  - Feeling abnormal [Unknown]
  - Back pain [Unknown]
  - Depression [Unknown]
  - Arthropathy [Unknown]
  - Retinal tear [Unknown]
  - Vitreous floaters [Not Recovered/Not Resolved]
  - Diverticulitis [Unknown]
  - Eye pain [Unknown]
  - Gastrooesophageal reflux disease [Unknown]
  - Insomnia [Unknown]
  - Lipoma [Not Recovered/Not Resolved]
  - Blindness unilateral [Unknown]
  - Eye abscess [Unknown]
  - Lung cyst [Not Recovered/Not Resolved]
  - Macular degeneration [Unknown]
  - Gastric cancer [Not Recovered/Not Resolved]
  - Gynaecomastia [Unknown]
  - Hypertension [Unknown]
  - Infection [Unknown]
  - Scar [Unknown]
  - Vitamin B12 abnormal [Unknown]
  - Benign prostatic hyperplasia [Unknown]
  - Dental discomfort [Unknown]
  - Photosensitivity reaction [Unknown]
  - Product administration error [Unknown]
  - Vision blurred [Unknown]
  - Pruritus [Unknown]
  - Renal disorder [Not Recovered/Not Resolved]
  - Cataract [Unknown]
